FAERS Safety Report 20186908 (Version 2)
Quarter: 2022Q1

REPORT INFORMATION
  Report Type: Spontaneous
  Country: US (occurrence: US)
  Receive Date: 20211215
  Receipt Date: 20220131
  Transmission Date: 20220423
  Serious: Yes (Other)
  Sender: FDA-Public Use
  Company Number: US-Accord-247167

PATIENT
  Age: 47 Year
  Sex: Female
  Weight: 159 kg

DRUGS (2)
  1. DOCETAXEL [Suspect]
     Active Substance: DOCETAXEL
     Indication: Sarcoma uterus
     Dosage: DOSE: 75MG/M2 ON DAY 8?EVERY 21 DAYS
     Dates: start: 20190130
  2. GEMCITABINE HYDROCHLORIDE [Suspect]
     Active Substance: GEMCITABINE HYDROCHLORIDE
     Indication: Sarcoma uterus
     Dosage: DOSE: 900 MG/M2 ON DAY 1 AND 8 EVERY 21 DAYS
     Dates: start: 20190130

REACTIONS (4)
  - Clostridium difficile colitis [Unknown]
  - Febrile neutropenia [Unknown]
  - Anaemia [Unknown]
  - Eye injury [Unknown]
